FAERS Safety Report 6253810-2 (Version None)
Quarter: 2009Q2

REPORT INFORMATION
  Report Type: 
  Country: None (occurrence: None)
  Receive Date: 20090629
  Receipt Date: 20090629
  Transmission Date: 20091009
  Serious: Yes (Life-Threatening, Hospitalization, Other)
  Sender: FDA-Public Use
  Company Number: None

PATIENT
  Age: 50 Year
  Sex: Female
  Weight: 70.3075 kg

DRUGS (1)
  1. PROAIR HFA [Suspect]
     Indication: ASTHMA
     Dosage: 2 PUFFS 4 A DAY AS NEEDED PROAIR
     Route: 055
     Dates: start: 20081030, end: 20090630

REACTIONS (5)
  - DRUG INEFFECTIVE [None]
  - IMPAIRED WORK ABILITY [None]
  - MALAISE [None]
  - PNEUMONIA [None]
  - QUALITY OF LIFE DECREASED [None]
